FAERS Safety Report 20685936 (Version 2)
Quarter: 2022Q3

REPORT INFORMATION
  Report Type: Spontaneous
  Country: US (occurrence: US)
  Receive Date: 20220407
  Receipt Date: 20220714
  Transmission Date: 20221027
  Serious: No
  Sender: FDA-Public Use
  Company Number: US-PALATIN TECHNOLOGIES, INC.-US-PALA-22-000001

PATIENT

DRUGS (1)
  1. VYLEESI [Suspect]
     Active Substance: BREMELANOTIDE ACETATE
     Indication: Product used for unknown indication
     Dosage: NO MRE THAN 8 PER MONTH
     Route: 058
     Dates: start: 20220213, end: 20220225

REACTIONS (10)
  - Fertility increased [Unknown]
  - Depressed mood [Recovered/Resolved]
  - Mood swings [Recovered/Resolved]
  - Orgasm abnormal [Unknown]
  - Unevaluable event [Unknown]
  - Feeling abnormal [Unknown]
  - Abortion induced [Recovered/Resolved]
  - Exposure during pregnancy [Unknown]
  - Injection site pruritus [Unknown]
  - Drug ineffective [Unknown]

NARRATIVE: CASE EVENT DATE: 20220101
